FAERS Safety Report 7383628-9 (Version None)
Quarter: 2011Q1

REPORT INFORMATION
  Report Type: 
  Country: None (occurrence: None)
  Receive Date: 20110330
  Receipt Date: 20110318
  Transmission Date: 20110831
  Serious: Yes (Other)
  Sender: FDA-Public Use
  Company Number: US-JNJFOC-20110308345

PATIENT
  Age: 17 Year
  Sex: Male
  Weight: 58.97 kg

DRUGS (1)
  1. DRAMAMINE [Suspect]
     Indication: PRODUCT USED FOR UNKNOWN INDICATION
     Dosage: TWELVE TABLETS
     Route: 048

REACTIONS (4)
  - HALLUCINATION [None]
  - MYDRIASIS [None]
  - OVERDOSE [None]
  - VOMITING [None]
